FAERS Safety Report 9158793 (Version 2)
Quarter: 2013Q2

REPORT INFORMATION
  Report Type: Spontaneous
  Country: US (occurrence: US)
  Receive Date: 20130215
  Receipt Date: 20130419
  Transmission Date: 20140414
  Serious: Yes (Other)
  Sender: FDA-Public Use
  Company Number: US-RB-046181-12

PATIENT
  Age: 0 None
  Sex: Male

DRUGS (5)
  1. SUBUTEX [Suspect]
     Route: 064
     Dates: start: 200909, end: 20100401
  2. SUBUTEX [Suspect]
     Indication: DRUG DEPENDENCE
     Route: 063
     Dates: start: 20100401, end: 20100403
  3. EFFEXOR [Suspect]
     Indication: DEPRESSION
     Dosage: DOSING DETAILS UNKNOWN
     Route: 064
     Dates: start: 200907, end: 20100401
  4. NICOTINE [Suspect]
     Indication: NICOTINE DEPENDENCE
     Dosage: 1 PACK PER DAY
     Route: 064
     Dates: start: 200907, end: 20100401
  5. VICODIN [Suspect]
     Indication: MATERNAL DISTRESS DURING LABOUR
     Dosage: DOSING DETAILS UNKNOWN
     Route: 064
     Dates: start: 200907, end: 200910

REACTIONS (4)
  - Foetal exposure during pregnancy [Recovered/Resolved]
  - Low birth weight baby [Recovered/Resolved]
  - Exposure during breast feeding [Recovered/Resolved]
  - Hypokinesia [Recovered/Resolved]
